FAERS Safety Report 18351994 (Version 1)
Quarter: 2020Q4

REPORT INFORMATION
  Report Type: Spontaneous
  Country: BE (occurrence: BE)
  Receive Date: 20201006
  Receipt Date: 20201006
  Transmission Date: 20210114
  Serious: Yes (Hospitalization)
  Sender: FDA-Public Use
  Company Number: BE-BAUSCH-BL-2020-028455

PATIENT
  Age: 44 Year
  Sex: Male

DRUGS (3)
  1. ELIDEL [Suspect]
     Active Substance: PIMECROLIMUS
     Indication: DERMATITIS ATOPIC
     Dosage: PRN 1 PER DAY WHEN ENCOUNTERING INTERMITTENT USE FOR 13 YEARS 1 DAY FLARE-UPS OF ECZEMA
     Route: 003
     Dates: start: 20060101, end: 20190101
  2. LAMICTAL [Concomitant]
     Active Substance: LAMOTRIGINE
     Indication: PRODUCT USED FOR UNKNOWN INDICATION
  3. DEPAKIN [Concomitant]
     Active Substance: VALPROATE SODIUM
     Indication: PRODUCT USED FOR UNKNOWN INDICATION

REACTIONS (1)
  - Primary mediastinal large B-cell lymphoma [Recovered/Resolved]

NARRATIVE: CASE EVENT DATE: 20190723
